FAERS Safety Report 6828236-0 (Version None)
Quarter: 2010Q3

REPORT INFORMATION
  Report Type: 
  Country: None (occurrence: None)
  Receive Date: 20100709
  Receipt Date: 20070417
  Transmission Date: 20110219
  Serious: No
  Sender: FDA-Public Use
  Company Number: US-PFIZER INC-2007009636

PATIENT
  Sex: Female
  Weight: 61.23 kg

DRUGS (7)
  1. CHANTIX [Suspect]
     Indication: SMOKING CESSATION THERAPY
     Dates: start: 20070101
  2. SYNTHROID [Concomitant]
     Indication: THYROIDECTOMY
  3. EFFEXOR [Concomitant]
  4. NEURONTIN [Concomitant]
  5. TRAZODONE [Concomitant]
     Indication: INSOMNIA
  6. FIORICET [Concomitant]
     Indication: MIGRAINE
  7. XANAX [Concomitant]
     Indication: PANIC ATTACK

REACTIONS (5)
  - DIZZINESS [None]
  - FEELING HOT [None]
  - HOT FLUSH [None]
  - IRRITABILITY [None]
  - MIGRAINE [None]
